FAERS Safety Report 15103241 (Version 1)
Quarter: 2018Q2

REPORT INFORMATION
  Report Type: Spontaneous
  Country: US (occurrence: US)
  Receive Date: 20180611
  Receipt Date: 20180611
  Transmission Date: 20180711
  Serious: No
  Sender: FDA-Public Use
  Company Number: None

PATIENT
  Age: 74 Year
  Sex: Female
  Weight: 49.95 kg

DRUGS (12)
  1. AZITHROMYCIN 250 MG TABLET (GENERIC FOR ZITHROMAX) [Suspect]
     Active Substance: AZITHROMYCIN ANHYDROUS
     Indication: OROPHARYNGEAL PAIN
     Dosage: ?          QUANTITY:1 DF DOSAGE FORM;?
     Route: 048
  2. RALOXIFENE. [Concomitant]
     Active Substance: RALOXIFENE
  3. DIPHENHYDRAMINE. [Concomitant]
     Active Substance: DIPHENHYDRAMINE
  4. NASAL SPRAY [Concomitant]
     Active Substance: UNSPECIFIED INGREDIENT
  5. AZELASTINE. [Concomitant]
     Active Substance: AZELASTINE HYDROCHLORIDE
  6. MULTIVITAMIN [Concomitant]
     Active Substance: VITAMINS
  7. OMEGA-3 ACIDS [Concomitant]
     Active Substance: OMEGA-3 FATTY ACIDS
  8. ASPIRIN. [Concomitant]
     Active Substance: ASPIRIN
  9. BIOTIN [Concomitant]
     Active Substance: BIOTIN
  10. CALCIUM-VITAMIN D [Concomitant]
     Active Substance: CALCIUM\VITAMIN D
  11. LOPERAMIDE [Concomitant]
     Active Substance: LOPERAMIDE
  12. METHYLPREDNISOLONE TABLETS, USP 4 MG (GENERIC FOR MEDROL) [Suspect]
     Active Substance: METHYLPREDNISOLONE SODIUM PHOSPHATE
     Indication: OROPHARYNGEAL PAIN
     Dosage: QUANTITY:21 DF DOSAGE FORM;?
     Route: 048

REACTIONS (6)
  - Incorrect dose administered [None]
  - Flushing [None]
  - Swelling face [None]
  - Decreased appetite [None]
  - Feeling hot [None]
  - Erythema [None]

NARRATIVE: CASE EVENT DATE: 20180610
